FAERS Safety Report 10266739 (Version 1)
Quarter: 2014Q2

REPORT INFORMATION
  Report Type: Spontaneous
  Country: GB (occurrence: GB)
  Receive Date: 20140630
  Receipt Date: 20140630
  Transmission Date: 20141212
  Serious: Yes (Other)
  Sender: FDA-Public Use
  Company Number: GB-ACCORD-024417

PATIENT
  Age: 60 Year
  Sex: Male
  Weight: 91 kg

DRUGS (12)
  1. SALMETEROL [Concomitant]
  2. TRAMADOL/TRAMADOL HYDROCHLORIDE [Suspect]
     Indication: PAIN
     Dosage: DOSAGE TEXT: 1-2 THREE TIMES A DAY
     Route: 048
     Dates: start: 2000, end: 20140606
  3. BEZAFIBRATE [Concomitant]
  4. LANTUS [Concomitant]
  5. DABIGATRAN/DABIGATRAN ETEXILATE [Interacting]
     Indication: PRODUCT USED FOR UNKNOWN INDICATION
  6. TIOTROPIUM/TIOTROPIUM BROMIDE [Concomitant]
  7. DOXAZOSIN [Concomitant]
  8. RAMIPRIL [Concomitant]
  9. SALBUTAMOL [Concomitant]
  10. OMEPRAZOLE [Concomitant]
  11. NOVORAPID [Concomitant]
  12. DAPAGLIFLOZIN [Interacting]
     Indication: PRODUCT USED FOR UNKNOWN INDICATION

REACTIONS (4)
  - Blister [Recovering/Resolving]
  - Self-injurious ideation [Recovering/Resolving]
  - Drug interaction [Unknown]
  - Depressed mood [Recovering/Resolving]
